FAERS Safety Report 18668826 (Version 1)
Quarter: 2020Q4

REPORT INFORMATION
  Report Type: Spontaneous
  Country: US (occurrence: US)
  Receive Date: 20201227
  Receipt Date: 20201227
  Transmission Date: 20210114
  Serious: Yes (Hospitalization)
  Sender: FDA-Public Use
  Company Number: None

PATIENT
  Age: 30 Year
  Sex: Female
  Weight: 91.35 kg

DRUGS (8)
  1. ATORVASTATIN [Concomitant]
     Active Substance: ATORVASTATIN
  2. VITAMIN C [Concomitant]
     Active Substance: ASCORBIC ACID
  3. ELIQUIS [Concomitant]
     Active Substance: APIXABAN
  4. LEVETIRACETAM. [Concomitant]
     Active Substance: LEVETIRACETAM
  5. HYDROCODONE-ACETAMIN [Concomitant]
     Active Substance: ACETAMINOPHEN\HYDROCODONE
  6. FAMOTIDINE. [Concomitant]
     Active Substance: FAMOTIDINE
  7. AVIANE [Suspect]
     Active Substance: ETHINYL ESTRADIOL\LEVONORGESTREL
     Indication: MENORRHAGIA
     Dosage: ?          QUANTITY:28 TABLET(S);?
     Route: 048
     Dates: start: 20201108, end: 20201129
  8. VITAMIN D3 [Concomitant]
     Active Substance: CHOLECALCIFEROL

REACTIONS (6)
  - Pain in jaw [None]
  - Infection [None]
  - Neck pain [None]
  - Cerebral venous sinus thrombosis [None]
  - Ear pain [None]
  - Haemorrhage intracranial [None]

NARRATIVE: CASE EVENT DATE: 20201211
